FAERS Safety Report 5033337-6 (Version None)
Quarter: 2006Q2

REPORT INFORMATION
  Report Type: 
  Country: None (occurrence: None)
  Receive Date: 20060623
  Receipt Date: 20060612
  Transmission Date: 20061013
  Serious: Yes (Death)
  Sender: FDA-Public Use
  Company Number: US-JNJFOC-20060502851

PATIENT
  Sex: Male
  Weight: 69.85 kg

DRUGS (14)
  1. DOXIL [Suspect]
     Indication: MULTIPLE MYELOMA
     Route: 042
  2. THALOMID [Suspect]
     Indication: MULTIPLE MYELOMA
     Route: 048
  3. DOCUSATE SODIUM [Concomitant]
     Route: 048
  4. DEXAMETHASONE TAB [Concomitant]
     Route: 048
  5. DEXAMETHASONE TAB [Concomitant]
     Route: 048
  6. INSULIN GLARGINE [Concomitant]
     Route: 058
  7. PANTOPRAZOLE [Concomitant]
     Route: 048
  8. METOPROLOL TARTRATE [Concomitant]
     Route: 048
  9. PIOGLITAZONE HCL [Concomitant]
     Route: 048
  10. SIMVASTATIN [Concomitant]
     Route: 048
  11. INSULIN LISPRO [Concomitant]
     Route: 058
  12. LEVOFLOXACIN [Concomitant]
     Route: 048
  13. PAMIDRONATE DISODIUM [Concomitant]
     Indication: HYPERCALCAEMIA
     Route: 042
  14. VANCOMYCIN [Concomitant]
     Route: 042

REACTIONS (11)
  - ACUTE RESPIRATORY FAILURE [None]
  - ANAEMIA [None]
  - DEATH [None]
  - HAEMOPTYSIS [None]
  - MULTIPLE MYELOMA [None]
  - NEUTROPENIA [None]
  - OROPHARYNGEAL CANDIDIASIS [None]
  - PLATELET COUNT DECREASED [None]
  - STAPHYLOCOCCAL SEPSIS [None]
  - UPPER GASTROINTESTINAL HAEMORRHAGE [None]
  - WHITE BLOOD CELL COUNT DECREASED [None]
